FAERS Safety Report 19145898 (Version 2)
Quarter: 2021Q2

REPORT INFORMATION
  Report Type: Spontaneous
  Country: FR (occurrence: FR)
  Receive Date: 20210416
  Receipt Date: 20210507
  Transmission Date: 20210717
  Serious: Yes (Other)
  Sender: FDA-Public Use
  Company Number: FR-TEVA-2021-FR-1901308

PATIENT
  Age: 65 Year
  Sex: Female
  Weight: 78 kg

DRUGS (4)
  1. VALIUM [Concomitant]
     Active Substance: DIAZEPAM
  2. OLANZAPINE. [Suspect]
     Active Substance: OLANZAPINE
     Indication: BIPOLAR DISORDER
     Dosage: 20MILLIGRAM
     Route: 048
     Dates: start: 20210316
  3. TERALITHE [Concomitant]
     Active Substance: LITHIUM CARBONATE
     Dates: start: 2013
  4. DEPAMIDE [Concomitant]
     Active Substance: VALPROMIDE
     Dates: start: 202006

REACTIONS (2)
  - Extrapyramidal disorder [Recovered/Resolved]
  - Camptocormia [Recovered/Resolved]

NARRATIVE: CASE EVENT DATE: 20210322
